FAERS Safety Report 6898069-8 (Version None)
Quarter: 2010Q3

REPORT INFORMATION
  Report Type: 
  Country: None (occurrence: None)
  Receive Date: 20100802
  Receipt Date: 20070821
  Transmission Date: 20110219
  Serious: No
  Sender: FDA-Public Use
  Company Number: US-PFIZER INC-2007070714

PATIENT
  Sex: Female
  Weight: 76.8 kg

DRUGS (9)
  1. LYRICA [Suspect]
     Indication: NEURALGIA
     Dates: start: 20070804, end: 20070801
  2. LYRICA [Suspect]
     Indication: PAIN IN EXTREMITY
  3. METOPROLOL [Concomitant]
  4. VALSARTAN [Concomitant]
  5. PLAVIX [Concomitant]
  6. ISOSORBIDE [Concomitant]
  7. ZETIA [Concomitant]
  8. LESCOL [Concomitant]
  9. CYMBALTA [Concomitant]

REACTIONS (2)
  - DIZZINESS [None]
  - FEELING DRUNK [None]
